FAERS Safety Report 16873729 (Version 1)
Quarter: 2019Q4

REPORT INFORMATION
  Report Type: Spontaneous
  Country: LB (occurrence: LB)
  Receive Date: 20191001
  Receipt Date: 20191001
  Transmission Date: 20200122
  Serious: Yes (Other)
  Sender: FDA-Public Use
  Company Number: LB-PFIZER INC-2019411189

PATIENT
  Age: 4 Month
  Sex: Male

DRUGS (3)
  1. LAMICTAL [Suspect]
     Active Substance: LAMOTRIGINE
     Indication: INFANTILE SPASMS
     Dosage: UNK
  2. EPANUTIN [Suspect]
     Active Substance: PHENYTOIN SODIUM
     Indication: INFANTILE SPASMS
     Dosage: UNK
  3. GARDENAL SODIUM [Suspect]
     Active Substance: PHENOBARBITAL
     Indication: INFANTILE SPASMS
     Dosage: UNK

REACTIONS (2)
  - Vitamin D deficiency [Recovered/Resolved]
  - Rickets [Recovered/Resolved]
